FAERS Safety Report 18523040 (Version 2)
Quarter: 2021Q1

REPORT INFORMATION
  Report Type: Report from Study
  Country: None (occurrence: PR)
  Receive Date: 20201119
  Receipt Date: 20210223
  Transmission Date: 20210419
  Serious: Yes (Hospitalization)
  Sender: FDA-Public Use
  Company Number: PR-ABBVIE-20K-131-3655058-00

PATIENT
  Age: 17 Year
  Sex: Female
  Weight: 69.01 kg

DRUGS (2)
  1. HUMIRA [Suspect]
     Active Substance: ADALIMUMAB
     Route: 058
     Dates: start: 2020
  2. HUMIRA [Suspect]
     Active Substance: ADALIMUMAB
     Indication: CROHN^S DISEASE
     Route: 058
     Dates: start: 20200104, end: 2020

REACTIONS (2)
  - Large intestinal stenosis [Recovering/Resolving]
  - Fistula [Recovered/Resolved]

NARRATIVE: CASE EVENT DATE: 20200110
